FAERS Safety Report 8504516-8 (Version None)
Quarter: 2012Q3

REPORT INFORMATION
  Report Type: 
  Country: None (occurrence: None)
  Receive Date: 20120711
  Receipt Date: 20120705
  Transmission Date: 20120928
  Serious: Yes (Other)
  Sender: FDA-Public Use
  Company Number: CA-PFIZER INC-2012111189

PATIENT
  Sex: Male

DRUGS (1)
  1. EPIPEN [Suspect]
     Dosage: UNK
     Dates: start: 20120501

REACTIONS (3)
  - ACCIDENTAL EXPOSURE [None]
  - PRODUCT QUALITY ISSUE [None]
  - CONVULSION [None]
